FAERS Safety Report 9829952 (Version 1)
Quarter: 2014Q1

REPORT INFORMATION
  Report Type: Spontaneous
  Country: US (occurrence: US)
  Receive Date: 20140120
  Receipt Date: 20140120
  Transmission Date: 20141002
  Serious: Yes (Other)
  Sender: FDA-Public Use
  Company Number: US-BAYER-2014-007705

PATIENT
  Age: 44 Year
  Sex: Female

DRUGS (5)
  1. ACETYLSALICYLIC ACID (} 100 MG) [Suspect]
  2. KETOROLAC [Suspect]
     Indication: IMMUNE TOLERANCE INDUCTION
     Route: 045
  3. MONTELUKAST [Concomitant]
     Indication: ASTHMA
  4. FLUTICASONE [Concomitant]
     Indication: CHRONIC SINUSITIS
     Dosage: 2 SPRAYS DAILY IN EACH NOSTRIL
     Route: 045
  5. PREDNISONE [Concomitant]
     Indication: ASTHMA
     Route: 048

REACTIONS (8)
  - Analgesic asthma syndrome [Recovering/Resolving]
  - Sinusitis [Recovering/Resolving]
  - Sinus polyp [Recovering/Resolving]
  - Asthma [Recovering/Resolving]
  - Lacrimation increased [None]
  - Nasal congestion [None]
  - Chest discomfort [None]
  - Wheezing [None]
